FAERS Safety Report 15015000 (Version 1)
Quarter: 2018Q2

REPORT INFORMATION
  Report Type: Report from Study
  Country: US (occurrence: US)
  Receive Date: 20180615
  Receipt Date: 20180615
  Transmission Date: 20180711
  Serious: Yes (Death)
  Sender: FDA-Public Use
  Company Number: US-TESARO, INC-US-2018TSO02939

PATIENT

DRUGS (1)
  1. ZEJULA [Suspect]
     Active Substance: NIRAPARIB
     Indication: OVARIAN CANCER
     Dosage: 200 MG, QD
     Route: 048
     Dates: start: 20180608, end: 20180610

REACTIONS (3)
  - General symptom [Fatal]
  - Intentional underdose [Recovered/Resolved]
  - Death [Fatal]

NARRATIVE: CASE EVENT DATE: 20180608
